FAERS Safety Report 21302945 (Version 1)
Quarter: 2022Q3

REPORT INFORMATION
  Report Type: Spontaneous
  Country: US (occurrence: US)
  Receive Date: 20220907
  Receipt Date: 20220907
  Transmission Date: 20221026
  Serious: Yes (Other)
  Sender: FDA-Public Use
  Company Number: US-INTRA-CELLULAR THERAPIES, INC.-2022ICT01110

PATIENT
  Age: 3 Decade
  Sex: Male

DRUGS (2)
  1. CAPLYTA [Suspect]
     Active Substance: LUMATEPERONE
     Indication: Schizophrenia
  2. TEGRETOL [Suspect]
     Active Substance: CARBAMAZEPINE

REACTIONS (4)
  - Psychotic disorder [Recovered/Resolved]
  - Aggression [Recovered/Resolved]
  - Drug level decreased [Recovered/Resolved]
  - Drug interaction [Recovered/Resolved]
